FAERS Safety Report 8298426-1 (Version None)
Quarter: 2012Q2

REPORT INFORMATION
  Report Type: 
  Country: None (occurrence: None)
  Receive Date: 20120418
  Receipt Date: 20120404
  Transmission Date: 20120825
  Serious: Yes (Other)
  Sender: FDA-Public Use
  Company Number: AUR-APL-2012-01794

PATIENT
  Age: 63 Year
  Sex: Female

DRUGS (1)
  1. VENLAFAXINE [Suspect]
     Indication: PRODUCT USED FOR UNKNOWN INDICATION

REACTIONS (6)
  - DIPLOPIA [None]
  - THROAT TIGHTNESS [None]
  - DIZZINESS [None]
  - DYSPNOEA [None]
  - RETCHING [None]
  - RENAL PAIN [None]
